FAERS Safety Report 7792352-X (Version None)
Quarter: 2011Q4

REPORT INFORMATION
  Report Type: 
  Country: None (occurrence: None)
  Receive Date: 20111003
  Receipt Date: 20110928
  Transmission Date: 20120403
  Serious: Yes (Hospitalization)
  Sender: FDA-Public Use
  Company Number: PHHY2011US55329

PATIENT
  Sex: Female
  Weight: 58.62 kg

DRUGS (1)
  1. EXJADE [Suspect]
     Indication: SICKLE CELL ANAEMIA
     Dosage: 1125 MG, DAILY
     Route: 048
     Dates: start: 20070726, end: 20110906

REACTIONS (2)
  - PELVIC FRACTURE [None]
  - FALL [None]
